FAERS Safety Report 23668866 (Version 1)
Quarter: 2024Q1

REPORT INFORMATION
  Report Type: Spontaneous
  Country: US (occurrence: US)
  Receive Date: 20240325
  Receipt Date: 20240325
  Transmission Date: 20240410
  Serious: No
  Sender: FDA-Public Use
  Company Number: US-Merz Pharmaceuticals GmbH-24-00820

PATIENT
  Sex: Female

DRUGS (9)
  1. XEOMIN [Suspect]
     Active Substance: INCOBOTULINUMTOXINA
     Indication: Product used for unknown indication
  2. XEOMIN [Suspect]
     Active Substance: INCOBOTULINUMTOXINA
  3. XEOMIN [Suspect]
     Active Substance: INCOBOTULINUMTOXINA
  4. XEOMIN [Suspect]
     Active Substance: INCOBOTULINUMTOXINA
  5. XEOMIN [Suspect]
     Active Substance: INCOBOTULINUMTOXINA
  6. XEOMIN [Suspect]
     Active Substance: INCOBOTULINUMTOXINA
  7. XEOMIN [Suspect]
     Active Substance: INCOBOTULINUMTOXINA
  8. XEOMIN [Suspect]
     Active Substance: INCOBOTULINUMTOXINA
  9. XEOMIN [Suspect]
     Active Substance: INCOBOTULINUMTOXINA

REACTIONS (3)
  - Pruritus [Recovered/Resolved]
  - Erythema [Recovered/Resolved]
  - Oedema [Recovered/Resolved]

NARRATIVE: CASE EVENT DATE: 20230901
